FAERS Safety Report 4758078-1 (Version None)
Quarter: 2005Q3

REPORT INFORMATION
  Report Type: 
  Country: None (occurrence: None)
  Receive Date: 20050829
  Receipt Date: 20050818
  Transmission Date: 20060218
  Serious: Yes (Hospitalization)
  Sender: FDA-Public Use
  Company Number: 2005117889

PATIENT
  Age: 84 Year
  Sex: Male

DRUGS (5)
  1. AMLODIPINE [Suspect]
     Dosage: FOR YEARS
     Dates: end: 20050719
  2. CLONIDINE [Suspect]
     Indication: ILL-DEFINED DISORDER
     Dosage: ORAL FOR YEARS
     Route: 048
     Dates: end: 20050719
  3. BACTRIM [Suspect]
     Indication: URINARY TRACT INFECTION
     Dates: start: 20050707, end: 20050712
  4. CORDARONE [Suspect]
     Indication: ILL-DEFINED DISORDER
     Dosage: ORAL FOR YEARS
     Dates: end: 20050719
  5. EFFEXOR [Suspect]
     Indication: ILL-DEFINED DISORDER
     Dates: start: 20050701, end: 20050713

REACTIONS (2)
  - DERMATITIS BULLOUS [None]
  - URINARY TRACT INFECTION [None]
